FAERS Safety Report 4703343-7 (Version None)
Quarter: 2005Q2

REPORT INFORMATION
  Report Type: 
  Country: None (occurrence: None)
  Receive Date: 20050624
  Receipt Date: 20050301
  Transmission Date: 20051028
  Serious: No
  Sender: FDA-Public Use
  Company Number: 2005BI000878

PATIENT
  Age: 47 Year
  Sex: Female
  Weight: 72.5755 kg

DRUGS (3)
  1. AVONEX [Suspect]
     Indication: MULTIPLE SCLEROSIS
     Dosage: 30 UG;QW;IM
     Route: 030
     Dates: start: 20010101, end: 20020801
  2. AVONEX [Suspect]
     Indication: MULTIPLE SCLEROSIS
     Dosage: 30 UG;QW;IM
     Route: 030
     Dates: start: 20030901, end: 20041201
  3. NATALIZUMAB [Suspect]
     Indication: MULTIPLE SCLEROSIS
     Dosage: 300 MG;QM;IV
     Route: 042
     Dates: start: 20041229

REACTIONS (12)
  - ANOREXIA [None]
  - CONJUNCTIVITIS INFECTIVE [None]
  - DIZZINESS [None]
  - FATIGUE [None]
  - FEELING HOT AND COLD [None]
  - HEADACHE [None]
  - LACRIMATION INCREASED [None]
  - MULTIPLE SCLEROSIS RELAPSE [None]
  - MUSCLE CONTRACTURE [None]
  - MYALGIA [None]
  - NAUSEA [None]
  - VOMITING [None]
